FAERS Safety Report 5795001-5 (Version None)
Quarter: 2008Q2

REPORT INFORMATION
  Report Type: 
  Country: None (occurrence: None)
  Receive Date: 20080630
  Receipt Date: 20080620
  Transmission Date: 20081010
  Serious: Yes (Life-Threatening, Hospitalization, Other)
  Sender: FDA-Public Use
  Company Number: A0734148A

PATIENT
  Sex: Female

DRUGS (2)
  1. BEXXAR [Suspect]
     Route: 042
     Dates: start: 20080618
  2. NO CONCURRENT MEDICATION [Concomitant]

REACTIONS (2)
  - BLOOD LACTATE DEHYDROGENASE INCREASED [None]
  - HYPERCALCAEMIA [None]
